FAERS Safety Report 25192460 (Version 1)
Quarter: 2025Q2

REPORT INFORMATION
  Report Type: Spontaneous
  Country: HU (occurrence: HU)
  Receive Date: 20250414
  Receipt Date: 20250414
  Transmission Date: 20250716
  Serious: Yes (Other)
  Sender: NOVARTIS
  Company Number: HU-002147023-NVSC2025HU058707

PATIENT
  Age: 61 Year
  Sex: Male
  Weight: 79 kg

DRUGS (8)
  1. EVEROLIMUS [Suspect]
     Active Substance: EVEROLIMUS
     Indication: Neuroendocrine tumour
     Dosage: 10 MG, QD (2ND LINE OF THERAPY)
     Route: 065
     Dates: start: 202203, end: 2022
  2. LUTATHERA [Suspect]
     Active Substance: LUTETIUM OXODOTREOTIDE LU-177
     Indication: Neuroendocrine tumour
     Route: 065
     Dates: start: 20220929
  3. LUTATHERA [Suspect]
     Active Substance: LUTETIUM OXODOTREOTIDE LU-177
     Route: 065
     Dates: start: 20221208
  4. LUTATHERA [Suspect]
     Active Substance: LUTETIUM OXODOTREOTIDE LU-177
     Route: 065
     Dates: start: 20230306
  5. LUTATHERA [Suspect]
     Active Substance: LUTETIUM OXODOTREOTIDE LU-177
     Route: 065
     Dates: start: 20230504
  6. CAPECITABINE [Suspect]
     Active Substance: CAPECITABINE
     Indication: Product used for unknown indication
     Route: 065
     Dates: start: 202310
  7. DENOSUMAB [Concomitant]
     Active Substance: DENOSUMAB
     Indication: Product used for unknown indication
     Route: 065
     Dates: start: 202303
  8. TEMOZOLOMIDE [Suspect]
     Active Substance: TEMOZOLOMIDE

REACTIONS (10)
  - Malignant neoplasm progression [Not Recovered/Not Resolved]
  - Neuroendocrine tumour [Not Recovered/Not Resolved]
  - Metastases to pancreas [Not Recovered/Not Resolved]
  - Metastases to liver [Not Recovered/Not Resolved]
  - Metastases to bone [Not Recovered/Not Resolved]
  - Ascites [Unknown]
  - Cachexia [Unknown]
  - Blood chromogranin A increased [Recovering/Resolving]
  - Pancreatic mass [Not Recovered/Not Resolved]
  - Pain [Unknown]

NARRATIVE: CASE EVENT DATE: 20220701
